FAERS Safety Report 24269103 (Version 2)
Quarter: 2025Q1

REPORT INFORMATION
  Report Type: Spontaneous
  Country: JP (occurrence: JP)
  Receive Date: 20240830
  Receipt Date: 20250121
  Transmission Date: 20250409
  Serious: Yes (Death, Hospitalization, Other)
  Sender: ELI LILLY AND COMPANY
  Company Number: JP-ELI_LILLY_AND_COMPANY-JP202408013342

PATIENT
  Age: 43 Year
  Sex: Female
  Weight: 47.1 kg

DRUGS (5)
  1. OLUMIANT [Suspect]
     Active Substance: BARICITINIB
     Indication: Rheumatoid arthritis
     Dosage: 4 MG, DAILY
     Route: 048
     Dates: start: 20200529, end: 20240402
  2. IGURATIMOD [Concomitant]
     Active Substance: IGURATIMOD
     Indication: Rheumatoid arthritis
     Route: 048
     Dates: start: 20200731, end: 20200820
  3. IGURATIMOD [Concomitant]
     Active Substance: IGURATIMOD
     Route: 048
     Dates: start: 20200821, end: 20230216
  4. IGURATIMOD [Concomitant]
     Active Substance: IGURATIMOD
     Indication: Rheumatoid arthritis
     Route: 048
     Dates: start: 20230207, end: 20241119
  5. METHOTREXATE [Concomitant]
     Active Substance: METHOTREXATE
     Indication: Rheumatoid arthritis
     Dates: start: 201406, end: 20240402

REACTIONS (5)
  - Ovarian cancer stage III [Fatal]
  - Metastases to peritoneum [Unknown]
  - Pulmonary venous thrombosis [Recovering/Resolving]
  - Subclavian vein thrombosis [Not Recovered/Not Resolved]
  - Deep vein thrombosis [Recovering/Resolving]

NARRATIVE: CASE EVENT DATE: 20240322
